FAERS Safety Report 7214577-4 (Version None)
Quarter: 2011Q1

REPORT INFORMATION
  Report Type: 
  Country: None (occurrence: None)
  Receive Date: 20110107
  Receipt Date: 20101231
  Transmission Date: 20110831
  Serious: Yes (Death)
  Sender: FDA-Public Use
  Company Number: US-PFIZER INC-2011002761

PATIENT
  Age: 70 Year
  Sex: Female

DRUGS (3)
  1. VERAPAMIL HCL [Suspect]
  2. BUPROPION [Suspect]
  3. FLUOXETINE [Suspect]

REACTIONS (1)
  - COMPLETED SUICIDE [None]
